FAERS Safety Report 13280892 (Version 2)
Quarter: 2018Q1

REPORT INFORMATION
  Report Type: Spontaneous
  Country: US (occurrence: US)
  Receive Date: 20170301
  Receipt Date: 20180228
  Transmission Date: 20180508
  Serious: No
  Sender: FDA-Public Use
  Company Number: US-INSYS THERAPEUTICS, INC-INS201606-000288

PATIENT
  Sex: Female
  Weight: 58.96 kg

DRUGS (1)
  1. SUBSYS [Suspect]
     Active Substance: FENTANYL
     Indication: BREAKTHROUGH PAIN
     Route: 060
     Dates: start: 20160104

REACTIONS (4)
  - Drug withdrawal syndrome [Unknown]
  - Extra dose administered [Not Recovered/Not Resolved]
  - Fall [Unknown]
  - Product quality issue [Unknown]
